FAERS Safety Report 7014162-3 (Version None)
Quarter: 2010Q3

REPORT INFORMATION
  Report Type: 
  Country: None (occurrence: None)
  Receive Date: 20100927
  Receipt Date: 20100915
  Transmission Date: 20110219
  Serious: Yes (Other)
  Sender: FDA-Public Use
  Company Number: US-JNJFOC-20100905815

PATIENT
  Sex: Female
  Weight: 104.33 kg

DRUGS (12)
  1. REMICADE [Suspect]
     Indication: RHEUMATOID ARTHRITIS
     Dosage: FOR 2 YEARS
     Route: 042
  2. METHOTREXATE [Concomitant]
  3. FOLIC ACID [Concomitant]
  4. SIMVASTATIN [Concomitant]
  5. METOPROLOL TARTRATE [Concomitant]
  6. COUMADIN [Concomitant]
  7. PREDNISONE TAB [Concomitant]
  8. HYDROCHLOROTHIAZIDE [Concomitant]
  9. FUROSEMIDE [Concomitant]
  10. PREVACID [Concomitant]
  11. CALCIUM [Concomitant]
  12. POTASSIUM [Concomitant]

REACTIONS (3)
  - CARDIAC DISORDER [None]
  - INFLUENZA [None]
  - PARANASAL SINUS HYPERSECRETION [None]
